FAERS Safety Report 9707567 (Version 1)
Quarter: 2013Q4

REPORT INFORMATION
  Report Type: Spontaneous
  Country: US (occurrence: US)
  Receive Date: 20131125
  Receipt Date: 20131125
  Transmission Date: 20140711
  Serious: No
  Sender: FDA-Public Use
  Company Number: US-TEVA-376493USA

PATIENT
  Age: 24 Year
  Sex: Female
  Weight: 57.2 kg

DRUGS (2)
  1. PARAGARD 380A [Suspect]
     Indication: CONTRACEPTION
     Route: 015
     Dates: start: 20121113, end: 20121203
  2. ALBUTEROL [Concomitant]
     Indication: ASTHMA

REACTIONS (1)
  - Device expulsion [Recovered/Resolved]
